FAERS Safety Report 25249839 (Version 1)
Quarter: 2025Q2

REPORT INFORMATION
  Report Type: Other
  Country: DK (occurrence: DK)
  Receive Date: 20250429
  Receipt Date: 20250429
  Transmission Date: 20250717
  Serious: Yes (Hospitalization)
  Sender: Integrated Therapeutic Solutions
  Company Number: DK-Integrated Therapeutic Solutions Inc.-2175762

PATIENT
  Age: 60 Year
  Sex: Female

DRUGS (1)
  1. PYLERA [Suspect]
     Active Substance: BISMUTH SUBCITRATE POTASSIUM\METRONIDAZOLE\TETRACYCLINE HYDROCHLORIDE
     Indication: Product used for unknown indication

REACTIONS (1)
  - Tachycardia [Unknown]
